FAERS Safety Report 11638406 (Version 2)
Quarter: 2015Q4

REPORT INFORMATION
  Report Type: Report from Study
  Country: HU (occurrence: HU)
  Receive Date: 20151016
  Receipt Date: 20151105
  Transmission Date: 20160304
  Serious: Yes (Hospitalization)
  Sender: FDA-Public Use
  Company Number: HU-KADMON PHARMACEUTICALS, LLC-KAD201510-003553

PATIENT
  Age: 55 Year
  Sex: Female

DRUGS (3)
  1. EXVIERA 250 MG TABLET [Suspect]
     Active Substance: DASABUVIR
     Indication: HEPATITIS C
     Route: 048
     Dates: start: 20150608, end: 20150903
  2. RIBAVIRIN. [Suspect]
     Active Substance: RIBAVIRIN
     Indication: HEPATITIS C
     Dosage: TABLET
     Route: 048
     Dates: start: 20150608, end: 201507
  3. VIEKIRAX [Suspect]
     Active Substance: OMBITASVIR\PARITAPREVIR\RITONAVIR
     Indication: HEPATITIS C
     Dosage: TABLET
     Route: 048
     Dates: start: 20150608, end: 20150903

REACTIONS (7)
  - Jaundice [Unknown]
  - Renal disorder [Unknown]
  - Renal failure [Recovered/Resolved]
  - Stoma site haemorrhage [Recovered/Resolved]
  - Hepatic cirrhosis [Recovered/Resolved]
  - Escherichia sepsis [Unknown]
  - Off label use [Unknown]

NARRATIVE: CASE EVENT DATE: 201506
